FAERS Safety Report 4755375-0 (Version None)
Quarter: 2005Q3

REPORT INFORMATION
  Report Type: 
  Country: None (occurrence: None)
  Receive Date: 20050826
  Receipt Date: 20050325
  Transmission Date: 20060218
  Serious: Yes (Other)
  Sender: FDA-Public Use
  Company Number: USA-2002-0000686

PATIENT
  Sex: Female
  Weight: 88 kg

DRUGS (9)
  1. OXYCONTIN [Suspect]
     Indication: PAIN
     Dosage: MG ,BID, ORAL
     Route: 048
     Dates: start: 19990101, end: 20020101
  2. VIOXX [Concomitant]
  3. ESTRATEST [Concomitant]
  4. VALIUM [Concomitant]
  5. LASIX [Concomitant]
  6. POTASSIUM [Concomitant]
  7. ALLOPURINOL [Concomitant]
  8. HYDROXYCHLOROQUINE SULFATE [Concomitant]
  9. PREVACID [Concomitant]

REACTIONS (5)
  - DRUG DEPENDENCE [None]
  - DRUG WITHDRAWAL SYNDROME [None]
  - HYPERURICAEMIA [None]
  - POLYARTHRITIS [None]
  - RHEUMATOID FACTOR POSITIVE [None]
